FAERS Safety Report 9517536 (Version 1)
Quarter: 2013Q3

REPORT INFORMATION
  Report Type: Spontaneous
  Country: DK (occurrence: DK)
  Receive Date: 20130911
  Receipt Date: 20130911
  Transmission Date: 20140515
  Serious: Yes (Other)
  Sender: FDA-Public Use
  Company Number: DK-ROCHE-1274039

PATIENT
  Age: 55 Year
  Sex: Female

DRUGS (3)
  1. BONDRONAT [Suspect]
     Indication: BREAST CANCER METASTATIC
     Dosage: STYRKE: 50 MG
     Route: 048
     Dates: start: 20080319, end: 20120503
  2. TAMOXIFEN [Concomitant]
     Indication: BREAST CANCER METASTATIC
     Route: 065
     Dates: start: 20060410, end: 20111012
  3. LETROZOLE [Concomitant]
     Indication: BREAST CANCER METASTATIC
     Route: 065

REACTIONS (2)
  - Osteonecrosis of jaw [Recovered/Resolved]
  - Exposed bone in jaw [Unknown]
